FAERS Safety Report 20010657 (Version 2)
Quarter: 2021Q4

REPORT INFORMATION
  Report Type: Report from Study
  Country: US (occurrence: US)
  Receive Date: 20211029
  Receipt Date: 20211102
  Transmission Date: 20220303
  Serious: Yes (Hospitalization)
  Sender: FDA-Public Use
  Company Number: US-BAYER-2021A236131

PATIENT
  Sex: Female
  Weight: 54.422 kg

DRUGS (1)
  1. ADEMPAS [Suspect]
     Active Substance: RIOCIGUAT
     Indication: Pulmonary arterial hypertension
     Dosage: 0.5 MG, TID
     Route: 048
     Dates: start: 20211004

REACTIONS (7)
  - Hospitalisation [None]
  - Oedema peripheral [None]
  - Localised oedema [None]
  - Rales [None]
  - Weight increased [None]
  - Nausea [None]
  - Diarrhoea [None]
